FAERS Safety Report 10053304 (Version 1)
Quarter: 2014Q2

REPORT INFORMATION
  Report Type: Spontaneous
  Country: AU (occurrence: AU)
  Receive Date: 20140402
  Receipt Date: 20140402
  Transmission Date: 20141212
  Serious: Yes (Other)
  Sender: FDA-Public Use
  Company Number: PHHY2014AU037920

PATIENT
  Age: 81 Year
  Sex: Female

DRUGS (5)
  1. LETROZOLE [Suspect]
     Indication: BREAST CANCER METASTATIC
     Dosage: 2.5 MG, PER DAY
  2. TAMOXIFEN [Suspect]
     Dosage: 20 MG, PER DAY
  3. BISPHOSPHONATES [Suspect]
     Dosage: UNK UKN, UNK
  4. CAPECITABINE [Suspect]
     Dosage: 1500 MG, BID
  5. DENOSUMAB [Suspect]
     Dosage: UNK UKN, UNK

REACTIONS (3)
  - Osteonecrosis of jaw [Unknown]
  - Carbohydrate antigen 15-3 increased [Unknown]
  - Bone pain [Unknown]
